FAERS Safety Report 10257891 (Version 1)
Quarter: 2014Q2

REPORT INFORMATION
  Report Type: Spontaneous
  Country: FR (occurrence: FR)
  Receive Date: 20140625
  Receipt Date: 20140625
  Transmission Date: 20141212
  Serious: Yes (Hospitalization, Disabling, Other)
  Sender: FDA-Public Use
  Company Number: FR-BRISTOL-MYERS SQUIBB COMPANY-21063045

PATIENT
  Age: 93 Year
  Sex: Female

DRUGS (14)
  1. COUMADINE [Suspect]
     Indication: ATRIAL FIBRILLATION
     Route: 048
     Dates: start: 2009, end: 20140516
  2. IKOREL [Concomitant]
  3. LASILIX FAIBLE [Concomitant]
  4. INEXIUM [Concomitant]
  5. KESTIN [Concomitant]
  6. VENTOLINE [Concomitant]
  7. BECLOMETASONE DIPROPIONATE+FORMOTEROL FUMARATE [Concomitant]
  8. SPIRIVA [Concomitant]
  9. AUGMENTIN [Concomitant]
  10. OROKEN [Concomitant]
  11. MONAZOL [Concomitant]
  12. AZITHROMYCIN [Concomitant]
  13. DAFALGAN [Concomitant]
  14. PIVALONE [Concomitant]

REACTIONS (2)
  - Subdural haematoma [Recovering/Resolving]
  - Fall [Unknown]
